FAERS Safety Report 11684552 (Version 1)
Quarter: 2015Q4

REPORT INFORMATION
  Report Type: Report from Study
  Country: US (occurrence: US)
  Receive Date: 20151029
  Receipt Date: 20151029
  Transmission Date: 20160304
  Serious: Yes (Other)
  Sender: FDA-Public Use
  Company Number: USB14-00911

PATIENT
  Sex: Female

DRUGS (2)
  1. GAMMAGARD LIQUID [Suspect]
     Active Substance: HUMAN IMMUNOGLOBULIN G
     Dosage: EVERY 6 WK
     Route: 042
     Dates: start: 20140516
  2. GAMMAGARD LIQUID [Suspect]
     Active Substance: HUMAN IMMUNOGLOBULIN G
     Indication: PRIMARY IMMUNODEFICIENCY SYNDROME
     Dosage: EVERY 6 WK
     Route: 042
     Dates: start: 2012

REACTIONS (13)
  - Pneumonia [Unknown]
  - Headache [Unknown]
  - Back pain [Unknown]
  - Activities of daily living impaired [Unknown]
  - Bronchitis chronic [Unknown]
  - Drug dose omission [Unknown]
  - Fatigue [Unknown]
  - Nausea [Unknown]
  - Malaise [Unknown]
  - Dizziness [Unknown]
  - Respiratory tract infection [Unknown]
  - Hyperhidrosis [Unknown]
  - Vomiting [Unknown]

NARRATIVE: CASE EVENT DATE: 2014
